FAERS Safety Report 6833914-3 (Version None)
Quarter: 2010Q3

REPORT INFORMATION
  Report Type: 
  Country: None (occurrence: None)
  Receive Date: 20100712
  Receipt Date: 20070406
  Transmission Date: 20110219
  Serious: Yes (Other)
  Sender: FDA-Public Use
  Company Number: US-PFIZER INC-2007028546

PATIENT
  Sex: Female
  Weight: 108.9 kg

DRUGS (8)
  1. CHANTIX [Suspect]
     Indication: SMOKING CESSATION THERAPY
     Dates: start: 20070403
  2. INSULIN [Interacting]
     Indication: DIABETES MELLITUS
  3. ACETYLSALICYLIC ACID [Interacting]
     Indication: ANTICOAGULANT THERAPY
  4. PLAVIX [Interacting]
     Indication: ANTICOAGULANT THERAPY
  5. VENTOLIN [Concomitant]
  6. VENTOLIN [Concomitant]
     Route: 055
  7. THEOPHYLLINE [Concomitant]
  8. ADVAIR DISKUS 100/50 [Concomitant]

REACTIONS (3)
  - BLOOD GLUCOSE INCREASED [None]
  - CONTUSION [None]
  - DRUG INTERACTION [None]
